FAERS Safety Report 6818702-6 (Version None)
Quarter: 2010Q2

REPORT INFORMATION
  Report Type: 
  Country: None (occurrence: None)
  Receive Date: 20100630
  Receipt Date: 20100603
  Transmission Date: 20101027
  Serious: Yes (Death)
  Sender: FDA-Public Use
  Company Number: 20108942

PATIENT
  Age: 72 Year
  Sex: Female

DRUGS (1)
  1. BACLOFEN [Suspect]
     Indication: MUSCLE SPASTICITY
     Dosage: MCG, DAILY INTRATHECAL
     Route: 037

REACTIONS (3)
  - BLOOD PRESSURE ABNORMAL [None]
  - RESPIRATORY DISORDER [None]
  - RUPTURED CEREBRAL ANEURYSM [None]
